FAERS Safety Report 24705524 (Version 1)
Quarter: 2024Q4

REPORT INFORMATION
  Report Type: Spontaneous
  Country: US (occurrence: US)
  Receive Date: 20241206
  Receipt Date: 20241206
  Transmission Date: 20250115
  Serious: Yes (Other)
  Sender: HIKMA
  Company Number: US-HIKMA PHARMACEUTICALS USA INC.-US-H14001-24-11335

PATIENT
  Sex: Male

DRUGS (6)
  1. AMIKACIN [Suspect]
     Active Substance: AMIKACIN
     Indication: Product used for unknown indication
     Dosage: MAINTAINED ON THIS REGIMEN THREE TIMES
     Route: 042
     Dates: start: 20230510
  2. AZITHROMYCIN [Suspect]
     Active Substance: AZITHROMYCIN
     Indication: Product used for unknown indication
     Dosage: MAINTAINED ON THIS REGIMEN THREE TIMES
     Route: 065
     Dates: start: 20230510
  3. ETHAMBUTOL [Suspect]
     Active Substance: ETHAMBUTOL HYDROCHLORIDE
     Indication: Product used for unknown indication
     Dosage: MAINTAINED ON THIS REGIMEN THREE TIMES
     Route: 065
     Dates: start: 20230510
  4. AMLODIPINE BESYLATE\LISINOPRIL [Concomitant]
     Active Substance: AMLODIPINE BESYLATE\LISINOPRIL
     Dosage: UNK
     Route: 065
     Dates: start: 202406
  5. AMIKACIN [Concomitant]
     Active Substance: AMIKACIN
     Indication: Product used for unknown indication
     Dosage: UNKNOWN
     Route: 065
     Dates: start: 202402
  6. RIFAMPIN [Concomitant]
     Active Substance: RIFAMPIN
     Indication: Product used for unknown indication
     Dosage: UNKNOWN
     Route: 065

REACTIONS (7)
  - Chest discomfort [Unknown]
  - Dysphonia [Unknown]
  - Dyspnoea [Unknown]
  - Cough [Unknown]
  - Night sweats [Unknown]
  - Weight decreased [Unknown]
  - Drug ineffective [Unknown]

NARRATIVE: CASE EVENT DATE: 20240601
